FAERS Safety Report 17217144 (Version 1)
Quarter: 2019Q4

REPORT INFORMATION
  Report Type: Report from Study
  Country: MX (occurrence: MX)
  Receive Date: 20191231
  Receipt Date: 20191231
  Transmission Date: 20200122
  Serious: Yes (Other)
  Sender: FDA-Public Use
  Company Number: MX-ADVANZ PHARMA-201908002335

PATIENT

DRUGS (1)
  1. METOPROLOL , HYDROCHLOROTHIAZIDE (HYDROCHLOROTHIAZIDE\METOPROLOL SUCCINATE) [Suspect]
     Active Substance: HYDROCHLOROTHIAZIDE\METOPROLOL SUCCINATE
     Indication: HYPERTENSION
     Dosage: 95 MG, QD, TABLET
     Route: 048
     Dates: start: 20140812

REACTIONS (3)
  - Drug interaction [Unknown]
  - Cardiac disorder [Not Recovered/Not Resolved]
  - Blood cholesterol abnormal [Not Recovered/Not Resolved]

NARRATIVE: CASE EVENT DATE: 20160812
